FAERS Safety Report 11259001 (Version 1)
Quarter: 2015Q3

REPORT INFORMATION
  Report Type: Spontaneous
  Country: US (occurrence: None)
  Receive Date: 20150709
  Receipt Date: 20150709
  Transmission Date: 20151125
  Serious: Yes (Life-Threatening, Other)
  Sender: FDA-Public Use
  Company Number: None

PATIENT
  Age: 12 Year
  Sex: Female

DRUGS (4)
  1. ARIPIPRAZOLE. [Suspect]
     Active Substance: ARIPIPRAZOLE
     Indication: AUTISM SPECTRUM DISORDER
     Route: 048
     Dates: start: 201504, end: 201506
  2. INTAMIV [Concomitant]
  3. ARIPIPRAZOLE. [Suspect]
     Active Substance: ARIPIPRAZOLE
     Indication: ANXIETY
     Route: 048
     Dates: start: 201504, end: 201506
  4. FLUONCTRONE [Concomitant]

REACTIONS (4)
  - Abnormal behaviour [None]
  - Physical assault [None]
  - Intentional self-injury [None]
  - Product substitution issue [None]

NARRATIVE: CASE EVENT DATE: 201504
